FAERS Safety Report 9025166 (Version 1)
Quarter: 2013Q1

REPORT INFORMATION
  Report Type: Spontaneous
  Country: US (occurrence: US)
  Receive Date: 20130122
  Receipt Date: 20130122
  Transmission Date: 20140127
  Serious: No
  Sender: FDA-Public Use
  Company Number: US-009507513-1301USA004456

PATIENT
  Sex: Male

DRUGS (1)
  1. SINGULAIR [Suspect]
     Route: 048

REACTIONS (3)
  - Withdrawal syndrome [Recovered/Resolved]
  - Abnormal behaviour [Recovered/Resolved]
  - Anxiety [Recovered/Resolved]
